FAERS Safety Report 7933146-1 (Version None)
Quarter: 2011Q4

REPORT INFORMATION
  Report Type: 
  Country: None (occurrence: None)
  Receive Date: 20111122
  Receipt Date: 20111107
  Transmission Date: 20120403
  Serious: Yes (Hospitalization, Other)
  Sender: FDA-Public Use
  Company Number: PHHY2011JP94657

PATIENT
  Age: 80 Year
  Sex: Male

DRUGS (14)
  1. SITAGLIPTIN [Suspect]
     Dosage: 50 MG/DAY
     Dates: start: 20100723, end: 20100725
  2. MAGNESIUM OXIDE [Concomitant]
     Dosage: 1500 MG/DAY
     Dates: start: 20100705, end: 20100713
  3. VALSARTAN [Suspect]
     Dosage: 80 MG/DAY
     Route: 048
     Dates: start: 20100630, end: 20100719
  4. ALBUMIN TANNATE [Concomitant]
     Dosage: 3 G/DAY
     Dates: start: 20100718, end: 20100723
  5. GLICLAZIDE [Concomitant]
     Dosage: 20 MG/DAY
     Dates: start: 20100502, end: 20100719
  6. SITAGLIPTIN [Suspect]
     Dosage: 50 MG/DAY
     Dates: start: 20100630, end: 20100719
  7. SELEGILINE [Concomitant]
     Dosage: 5 MG/DAY
     Dates: start: 20100218, end: 20100626
  8. LOPERAMIDE HCL [Concomitant]
     Dosage: 2 MG/DAY
     Dates: start: 20100719, end: 20100723
  9. VOGLIBOSE [Concomitant]
     Dosage: 0.9 MG/DAY
     Dates: start: 20100601, end: 20100629
  10. LEVODOPA [Concomitant]
     Dosage: 400 MG/DAY
     Dates: start: 20091229
  11. ENTACAPONE [Concomitant]
     Dosage: 100 MG/DAY
     Dates: start: 20100713, end: 20100717
  12. DOMPERIDONE [Concomitant]
     Dosage: 15 MG/DAY
     Dates: start: 20091229, end: 20100719
  13. CEFAZOLIN SODIUM [Concomitant]
     Dosage: 3 G/DAY
     Dates: start: 20100716, end: 20100728
  14. SELEGILINE [Concomitant]
     Dosage: 2.5 MG/DAY
     Dates: start: 20100627

REACTIONS (31)
  - NEUROPATHY PERIPHERAL [None]
  - RETINOPATHY [None]
  - PYREXIA [None]
  - GAIT DISTURBANCE [None]
  - DYSSTASIA [None]
  - HAEMORRHAGE [None]
  - EOSINOPHIL COUNT INCREASED [None]
  - OEDEMA [None]
  - HYPERTENSION [None]
  - SPEECH DISORDER [None]
  - STARVATION [None]
  - DIABETIC NEPHROPATHY [None]
  - BACTERIAL TEST POSITIVE [None]
  - DIARRHOEA [None]
  - DECREASED APPETITE [None]
  - DIABETES MELLITUS INADEQUATE CONTROL [None]
  - HYPERTROPHY [None]
  - DYSLIPIDAEMIA [None]
  - DEHYDRATION [None]
  - ENTEROCOLITIS INFECTIOUS [None]
  - DIABETIC MICROANGIOPATHY [None]
  - HEARING IMPAIRED [None]
  - MUSCLE RIGIDITY [None]
  - WHITE BLOOD CELL COUNT INCREASED [None]
  - SKIN LESION [None]
  - COLITIS [None]
  - INFLAMMATION [None]
  - ENTEROCOLITIS HAEMORRHAGIC [None]
  - HAEMATOCHEZIA [None]
  - ERYTHEMA [None]
  - MELAENA [None]
